FAERS Safety Report 19584720 (Version 24)
Quarter: 2025Q1

REPORT INFORMATION
  Report Type: Report from Study
  Country: US (occurrence: US)
  Receive Date: 20210720
  Receipt Date: 20250109
  Transmission Date: 20250408
  Serious: Yes (Hospitalization, Other)
  Sender: TAKEDA
  Company Number: US-TAKEDA-2021TUS001452

PATIENT
  Age: 79 Year
  Sex: Female
  Weight: 79 kg

DRUGS (28)
  1. HUMAN IMMUNOGLOBULIN G [Suspect]
     Active Substance: HUMAN IMMUNOGLOBULIN G
     Indication: Immunodeficiency common variable
     Dosage: 8 GRAM, 1/WEEK
     Dates: start: 20201204
  2. HUMAN IMMUNOGLOBULIN G [Suspect]
     Active Substance: HUMAN IMMUNOGLOBULIN G
     Indication: Primary immunodeficiency syndrome
     Dosage: 8 GRAM, 3/MONTH
  3. HUMAN IMMUNOGLOBULIN G [Suspect]
     Active Substance: HUMAN IMMUNOGLOBULIN G
  4. HUMAN IMMUNOGLOBULIN G [Suspect]
     Active Substance: HUMAN IMMUNOGLOBULIN G
     Dosage: 8 GRAM, Q3MONTHS
  5. HUMAN IMMUNOGLOBULIN G [Suspect]
     Active Substance: HUMAN IMMUNOGLOBULIN G
     Dosage: UNK UNK, 1/WEEK
  6. HUMAN IMMUNOGLOBULIN G [Suspect]
     Active Substance: HUMAN IMMUNOGLOBULIN G
     Dosage: 8 GRAM, 1/WEEK
  7. HUMAN IMMUNOGLOBULIN G [Suspect]
     Active Substance: HUMAN IMMUNOGLOBULIN G
  8. HUMAN IMMUNOGLOBULIN G [Suspect]
     Active Substance: HUMAN IMMUNOGLOBULIN G
     Dosage: UNK UNK, 1/WEEK
  9. DIPHENHYDRAMINE [Concomitant]
     Active Substance: DIPHENHYDRAMINE
  10. ACETAMINOPHEN\HYDROCODONE [Concomitant]
     Active Substance: ACETAMINOPHEN\HYDROCODONE
  11. LEVOTHYROXINE SODIUM [Concomitant]
     Active Substance: LEVOTHYROXINE SODIUM
  12. EPINEPHRINE [Concomitant]
     Active Substance: EPINEPHRINE
  13. AZITHROMYCIN [Concomitant]
     Active Substance: AZITHROMYCIN
  14. YUPELRI [Concomitant]
     Active Substance: REVEFENACIN
  15. IRON [Concomitant]
     Active Substance: IRON
  16. RHINOCORT ALLERGY [Concomitant]
     Active Substance: BUDESONIDE
  17. BROVANA [Concomitant]
     Active Substance: ARFORMOTEROL TARTRATE
  18. Lmx [Concomitant]
  19. GABAPENTIN [Concomitant]
     Active Substance: GABAPENTIN
  20. MELOXICAM [Concomitant]
     Active Substance: MELOXICAM
     Indication: Osteoarthritis
     Dosage: UNK UNK, QD
  21. COLACE [Concomitant]
     Active Substance: DOCUSATE SODIUM
  22. HYDROCHLOROTHIAZIDE [Concomitant]
     Active Substance: HYDROCHLOROTHIAZIDE
  23. MONTELUKAST SODIUM [Concomitant]
     Active Substance: MONTELUKAST SODIUM
  24. ASPIRIN [Concomitant]
     Active Substance: ASPIRIN
  25. LOVASTATIN [Concomitant]
     Active Substance: LOVASTATIN
     Indication: Hypercholesterolaemia
     Dosage: UNK UNK, QD
  26. NORCO [Concomitant]
     Active Substance: ACETAMINOPHEN\HYDROCODONE BITARTRATE
  27. ALEVE [Concomitant]
     Active Substance: NAPROXEN SODIUM
  28. SYNTHROID [Suspect]
     Active Substance: LEVOTHYROXINE SODIUM
     Indication: Hypothyroidism
     Dosage: UNK UNK, QD

REACTIONS (21)
  - Haemorrhage [Recovered/Resolved]
  - Upper limb fracture [Unknown]
  - Rib fracture [Unknown]
  - Muscle spasms [Unknown]
  - Fall [Unknown]
  - Immunoglobulins decreased [Unknown]
  - Dermatitis contact [Unknown]
  - Illness [Unknown]
  - Eye pruritus [Unknown]
  - Poor venous access [Unknown]
  - Product dose omission issue [Unknown]
  - Seasonal allergy [Unknown]
  - Vertigo [Unknown]
  - Malaise [Unknown]
  - Infusion site bruising [Recovered/Resolved]
  - Back pain [Unknown]
  - Pain [Recovered/Resolved]
  - Dizziness [Recovered/Resolved]
  - Pruritus [Recovered/Resolved]
  - Fatigue [Unknown]
  - Cellulite [Recovering/Resolving]

NARRATIVE: CASE EVENT DATE: 20240819
